FAERS Safety Report 7069328-3 (Version None)
Quarter: 2010Q4

REPORT INFORMATION
  Report Type: 
  Country: None (occurrence: None)
  Receive Date: 20101028
  Receipt Date: 20101022
  Transmission Date: 20110411
  Serious: Yes (Hospitalization)
  Sender: FDA-Public Use
  Company Number: ZA-BAXTER-2010BH026647

PATIENT
  Age: 71 Year
  Sex: Female
  Weight: 96 kg

DRUGS (12)
  1. CYCLOPHOSPHAMIDE [Suspect]
     Indication: BREAST CANCER
     Route: 065
     Dates: start: 20100420
  2. GRANOCYTE 34 [Suspect]
     Indication: BREAST CANCER
     Route: 065
     Dates: start: 20100422
  3. TAXOTERE [Suspect]
     Indication: BREAST CANCER
     Route: 065
     Dates: start: 20100420
  4. DOXAZOSIN MESYLATE [Concomitant]
     Indication: HYPERTENSION
     Route: 065
     Dates: start: 20010101
  5. PURICOS [Concomitant]
     Indication: BLOOD URIC ACID INCREASED
     Route: 065
     Dates: start: 20100414
  6. PURESIS [Concomitant]
     Indication: HYPERTENSION
     Route: 065
     Dates: start: 20010101
  7. ZANIDIP [Concomitant]
     Indication: HYPERTENSION
     Route: 065
     Dates: start: 20010101
  8. SPIRACTIN [Concomitant]
     Indication: HYPERTENSION
     Route: 065
     Dates: start: 20010101
  9. LANOXIN [Concomitant]
     Indication: ARRHYTHMIA
     Route: 065
     Dates: start: 20010101
  10. WARFARIN SODIUM [Concomitant]
     Indication: HYPERTENSION
     Route: 065
     Dates: start: 20010101
  11. DILATREND [Concomitant]
     Indication: HYPERTENSION
     Route: 065
     Dates: start: 20010101
  12. ATORVASTATIN CALCIUM [Concomitant]
     Indication: BLOOD CHOLESTEROL
     Route: 065
     Dates: start: 20010101

REACTIONS (1)
  - EPISTAXIS [None]
